FAERS Safety Report 7434351-3 (Version None)
Quarter: 2011Q2

REPORT INFORMATION
  Report Type: 
  Country: None (occurrence: None)
  Receive Date: 20110425
  Receipt Date: 20110419
  Transmission Date: 20111010
  Serious: No
  Sender: FDA-Public Use
  Company Number: US-PFIZER INC-2011056453

PATIENT
  Sex: Female

DRUGS (1)
  1. VERAPAMIL HCL [Suspect]
     Indication: PALPITATIONS
     Dosage: 180 MG, UNK

REACTIONS (3)
  - ASTHENIA [None]
  - HEART RATE INCREASED [None]
  - DIZZINESS [None]
